FAERS Safety Report 15443160 (Version 1)
Quarter: 2018Q3

REPORT INFORMATION
  Report Type: Report from Study
  Country: US (occurrence: US)
  Receive Date: 20180928
  Receipt Date: 20180928
  Transmission Date: 20181010
  Serious: No
  Sender: FDA-Public Use
  Company Number: US-AMGEN-USASL2018076488

PATIENT
  Age: 41 Year
  Sex: Female

DRUGS (22)
  1. DAILY?VITE [Concomitant]
     Dosage: 1 DF, QD
     Route: 048
     Dates: start: 20170718
  2. DOCUSATE SODIUM. [Concomitant]
     Active Substance: DOCUSATE SODIUM
     Dosage: 100 MG, BID
     Route: 048
  3. NEOSPORIN [Concomitant]
     Active Substance: BACITRACIN ZINC\NEOMYCIN SULFATE\POLYMYXIN B SULFATE
     Dosage: 3.5 MG?400 UNIT?5000 UNIT, AS NECESSARY
     Route: 061
     Dates: start: 20150817
  4. OYSTER SHELL CALCIUM + D3 [Concomitant]
     Dosage: 500 MG/200 UNIT, BID
     Route: 048
  5. REFRESH LACRI LUBE [Concomitant]
     Dosage: 56.8/42.5 %, QHS
     Dates: start: 20170201
  6. ALBUTEROL SULFATE. [Concomitant]
     Active Substance: ALBUTEROL SULFATE
     Dosage: 2.5 MG, QHS
     Route: 045
     Dates: start: 20180426
  7. TAMOXIFEN [Concomitant]
     Active Substance: TAMOXIFEN
     Indication: BREAST CANCER
     Dosage: 20 MG, QD
     Route: 048
     Dates: start: 20160728
  8. CALCIUM [Concomitant]
     Active Substance: CALCIUM
     Dosage: 1000 MG, UNK
  9. INFLUENZA [Concomitant]
     Active Substance: INFLUENZA VIRUS VACCINE
     Dosage: 0.1 ML, UNK
     Route: 023
  10. VITAMIN D [Concomitant]
     Active Substance: CHOLECALCIFEROL
     Dosage: 800 IU, UNK
  11. ACETAMINOPHEN. [Concomitant]
     Active Substance: ACETAMINOPHEN
     Dosage: 325 MG, Q4H
     Route: 048
     Dates: start: 20150803
  12. CARBAMIDE PEROXIDE [Concomitant]
     Active Substance: CARBAMIDE PEROXIDE
     Dosage: 6.5 %, (FOR 5 DAYS OF EACH MONTH)
     Dates: start: 20170607
  13. LORATADINE. [Concomitant]
     Active Substance: LORATADINE
     Dosage: 10 MG, QD
     Route: 048
     Dates: start: 20170607
  14. ALCLOMETASONE [Concomitant]
     Active Substance: ALCLOMETASONE
     Dosage: 0.05 %, BID
     Route: 061
     Dates: start: 20110131
  15. VUSION [Concomitant]
     Active Substance: MICONAZOLE NITRATE\PETROLATUM\ZINC OXIDE
     Dosage: 0.25/15/81.35 %, AS NECESSARY
     Route: 061
     Dates: start: 20150817
  16. CHLORHEXIDINE GLUCONATE. [Concomitant]
     Active Substance: CHLORHEXIDINE GLUCONATE
     Dosage: 0.12 %, BID
     Dates: start: 20180426
  17. LEVOTHYROXINE. [Concomitant]
     Active Substance: LEVOTHYROXINE
     Dosage: 75 MUG, QD
     Route: 048
     Dates: start: 20180426
  18. MUPIROCIN. [Concomitant]
     Active Substance: MUPIROCIN
     Dosage: 2 %, Q12H
     Route: 061
     Dates: start: 20170808
  19. VITAMIN D3 [Concomitant]
     Active Substance: CHOLECALCIFEROL
     Dosage: 400 UNIT, BID
     Route: 048
  20. PROLIA [Suspect]
     Active Substance: DENOSUMAB
     Indication: BONE DISORDER
     Dosage: UNK
     Route: 065
  21. APPLE CIDER VINEGAR [Concomitant]
     Active Substance: APPLE CIDER VINEGAR
  22. TDAP [Concomitant]
     Active Substance: TETANUS TOXOID, REDUCED DIPHTHERIA TOXOID AND ACELLULAR PERTUSSIS VACCINE ADSORBED, TDAP
     Dosage: UNK
     Dates: start: 20110719

REACTIONS (1)
  - Off label use [Unknown]
